FAERS Safety Report 6793073-2 (Version None)
Quarter: 2010Q2

REPORT INFORMATION
  Report Type: 
  Country: None (occurrence: None)
  Receive Date: 20100624
  Receipt Date: 20081103
  Transmission Date: 20101027
  Serious: No
  Sender: FDA-Public Use
  Company Number: US-PFIZER INC-2008093579

PATIENT
  Sex: Male
  Weight: 72.727 kg

DRUGS (2)
  1. GEODON [Suspect]
     Route: 048
  2. EFFEXOR [Concomitant]

REACTIONS (2)
  - POOR QUALITY SLEEP [None]
  - SOMNOLENCE [None]
